FAERS Safety Report 14607744 (Version 1)
Quarter: 2018Q1

REPORT INFORMATION
  Report Type: Spontaneous
  Country: US (occurrence: US)
  Receive Date: 20180307
  Receipt Date: 20180307
  Transmission Date: 20180509
  Serious: No
  Sender: FDA-Public Use
  Company Number: US-GLAXOSMITHKLINE-US2018035408

PATIENT
  Sex: Female

DRUGS (1)
  1. BREO ELLIPTA [Suspect]
     Active Substance: FLUTICASONE FUROATE\VILANTEROL TRIFENATATE
     Indication: MULTIPLE ALLERGIES
     Dosage: 1 PUFF(S), QD
     Route: 055
     Dates: start: 20180228

REACTIONS (3)
  - Overdose [Unknown]
  - Extra dose administered [Unknown]
  - Wrong technique in device usage process [Unknown]
